FAERS Safety Report 5333582-6 (Version None)
Quarter: 2007Q2

REPORT INFORMATION
  Report Type: 
  Country: None (occurrence: None)
  Receive Date: 20070308
  Receipt Date: 20061101
  Transmission Date: 20071010
  Serious: No
  Sender: FDA-Public Use
  Company Number: 2006-BP-12827BP

PATIENT
  Age: 54 Year
  Sex: Female

DRUGS (4)
  1. SPIRIVA [Suspect]
     Indication: CHRONIC OBSTRUCTIVE PULMONARY DISEASE
     Dosage: 18 MCG (18 MCG, 1 IN 1 D), IH
     Route: 055
     Dates: start: 20060101
  2. SEREVENT [Concomitant]
  3. ALBUTEROL [Concomitant]
  4. CLONAZEPAM [Concomitant]

REACTIONS (1)
  - CHEST DISCOMFORT [None]
